FAERS Safety Report 4790068-5 (Version None)
Quarter: 2005Q3

REPORT INFORMATION
  Report Type: 
  Country: None (occurrence: None)
  Receive Date: 20050914
  Receipt Date: 20041013
  Transmission Date: 20060218
  Serious: Yes (Life-Threatening)
  Sender: FDA-Public Use
  Company Number: 163-20785-04100366

PATIENT
  Age: 76 Year
  Sex: Female

DRUGS (4)
  1. THALOMID [Suspect]
     Indication: SARCOMA
     Dosage: 400 MG, DAILY, ORAL
     Route: 048
     Dates: start: 20040520, end: 20040701
  2. VITAMINS (VITAMINS) (UNKNOWN) [Concomitant]
  3. FLAVONOIDS (BIOFLAVONOIDS) (UNKNOWN) [Concomitant]
  4. TYLENOL (PARACETAMOL) (UNKNOWN) [Concomitant]

REACTIONS (4)
  - CONFUSIONAL STATE [None]
  - DISEASE PROGRESSION [None]
  - METASTASES TO LUNG [None]
  - METASTASES TO LYMPH NODES [None]
